FAERS Safety Report 6144397-3 (Version None)
Quarter: 2009Q2

REPORT INFORMATION
  Report Type: 
  Country: None (occurrence: None)
  Receive Date: 20090406
  Receipt Date: 20090325
  Transmission Date: 20091009
  Serious: Yes (Hospitalization)
  Sender: FDA-Public Use
  Company Number: US-NOVOPROD-285621

PATIENT
  Age: 22 Year
  Sex: Male

DRUGS (1)
  1. NOVOSEVEN RT [Suspect]
     Indication: FACTOR VIII DEFICIENCY
     Route: 042

REACTIONS (4)
  - ADVERSE DRUG REACTION [None]
  - CATHETER RELATED INFECTION [None]
  - MUSCLE SPASMS [None]
  - TREMOR [None]
